FAERS Safety Report 15997219 (Version 1)
Quarter: 2019Q1

REPORT INFORMATION
  Report Type: Spontaneous
  Country: None (occurrence: US)
  Receive Date: 20190222
  Receipt Date: 20190222
  Transmission Date: 20190418
  Serious: No
  Sender: FDA-Public Use
  Company Number: US-MORTON GROVE PHARMACEUTICALS, INC.-2063075

PATIENT
  Age: 39 Year
  Sex: Female
  Weight: 57.27 kg

DRUGS (2)
  1. OMEPRAZOLE. [Concomitant]
     Active Substance: OMEPRAZOLE
  2. PROMETHAZINE WITH DEXTROMETHORPHAN [Suspect]
     Active Substance: DEXTROMETHORPHAN\PROMETHAZINE
     Indication: PNEUMONIA
     Route: 048
     Dates: start: 20190205, end: 20190209

REACTIONS (1)
  - Vision blurred [Recovering/Resolving]
